FAERS Safety Report 24701556 (Version 1)
Quarter: 2024Q4

REPORT INFORMATION
  Report Type: Spontaneous
  Country: US (occurrence: US)
  Receive Date: 20241205
  Receipt Date: 20241205
  Transmission Date: 20250115
  Serious: Yes (Other)
  Sender: FENNEC PHARMACEUTICALS
  Company Number: US-FENNEC PHARMACEUTICALS, INC.-2024FEN00066

PATIENT
  Age: 32 Year
  Sex: Female

DRUGS (1)
  1. SODIUM THIOSULFATE [Suspect]
     Active Substance: SODIUM THIOSULFATE
     Indication: Calciphylaxis

REACTIONS (2)
  - Metabolic acidosis [Recovered/Resolved]
  - Off label use [Recovered/Resolved]
